FAERS Safety Report 4266019-9 (Version None)
Quarter: 2004Q1

REPORT INFORMATION
  Report Type: 
  Country: None (occurrence: None)
  Receive Date: 20040107
  Receipt Date: 20040107
  Transmission Date: 20041129
  Serious: Yes (Other)
  Sender: FDA-Public Use
  Company Number: None

PATIENT
  Sex: Female
  Weight: 84.369 kg

DRUGS (2)
  1. FIORICET [Suspect]
     Indication: FACIAL PALSY
     Dosage: ONCE  PO BID
     Route: 048
     Dates: start: 19940101
  2. FIORICET [Suspect]
     Indication: MIGRAINE
     Dosage: ONCE  PO BID
     Route: 048
     Dates: start: 19940101

REACTIONS (3)
  - NAUSEA [None]
  - PHARMACEUTICAL PRODUCT COMPLAINT [None]
  - VOMITING [None]
